FAERS Safety Report 7388648-6 (Version None)
Quarter: 2011Q1

REPORT INFORMATION
  Report Type: 
  Country: None (occurrence: None)
  Receive Date: 20110329
  Receipt Date: 20110329
  Transmission Date: 20110831
  Serious: Yes (Other)
  Sender: FDA-Public Use
  Company Number: None

PATIENT
  Sex: Male
  Weight: 70 kg

DRUGS (4)
  1. TORADOL [Concomitant]
  2. ZOFRAN [Concomitant]
  3. ISOVUE-370 [Suspect]
     Indication: COMPUTERISED TOMOGRAM
     Dosage: IVP 96 ML 1X DAY
     Route: 042
     Dates: start: 20110317
  4. MORPHINE [Concomitant]

REACTIONS (4)
  - CONTRAST MEDIA REACTION [None]
  - THROAT IRRITATION [None]
  - THROAT TIGHTNESS [None]
  - URTICARIA [None]
